FAERS Safety Report 18496703 (Version 1)
Quarter: 2020Q4

REPORT INFORMATION
  Report Type: Spontaneous
  Country: US (occurrence: US)
  Receive Date: 20201112
  Receipt Date: 20201112
  Transmission Date: 20210114
  Serious: Yes (Other)
  Sender: FDA-Public Use
  Company Number: US-009507513-2011USA001904

PATIENT
  Sex: Female
  Weight: 68.1 kg

DRUGS (8)
  1. ZOCOR [Concomitant]
     Active Substance: SIMVASTATIN
     Route: 048
  2. NORVASC [Suspect]
     Active Substance: AMLODIPINE BESYLATE
     Indication: HYPERTENSION
     Dosage: DAILY DOSE: 5MILLIGRAM-FREQ:1DAYS
     Route: 065
     Dates: start: 1999
  3. PREMARIN [Concomitant]
     Active Substance: ESTROGENS, CONJUGATED
     Route: 048
  4. PRINIVIL [Suspect]
     Active Substance: LISINOPRIL
     Indication: TYPE 2 DIABETES MELLITUS
     Dosage: DAILY DOSE: 10MILLIGRAM-FREQ:1DAYS
     Route: 065
     Dates: start: 200411
  5. PRINIVIL [Suspect]
     Active Substance: LISINOPRIL
     Indication: HYPERTENSION
     Dosage: DAILY DOSE: 5MILLIGRAM-FREQ:1DAYS
     Route: 065
     Dates: start: 200206
  6. VITAMINS (UNSPECIFIED) [Concomitant]
     Active Substance: VITAMINS
     Route: 048
  7. GLIPIZIDE. [Concomitant]
     Active Substance: GLIPIZIDE
     Route: 048
  8. GRAPEFRUIT. [Suspect]
     Active Substance: GRAPEFRUIT
     Indication: ILL-DEFINED DISORDER
     Dosage: TEXT:8 OUNCE EACH NIGHT-FREQ:1DAYS
     Route: 065
     Dates: start: 20041115

REACTIONS (4)
  - Angioedema [Recovering/Resolving]
  - Food interaction [Unknown]
  - Lip oedema [Recovering/Resolving]
  - Hypotension [Unknown]

NARRATIVE: CASE EVENT DATE: 2003
